FAERS Safety Report 14134129 (Version 1)
Quarter: 2017Q4

REPORT INFORMATION
  Report Type: Spontaneous
  Country: US (occurrence: US)
  Receive Date: 20171026
  Receipt Date: 20171026
  Transmission Date: 20180321
  Serious: No
  Sender: FDA-Public Use
  Company Number: US-TESARO, INC.-US-2017TSO01729

PATIENT

DRUGS (2)
  1. ZEJULA [Suspect]
     Active Substance: NIRAPARIB
     Dosage: 3 DF, QD
     Route: 048
     Dates: start: 20170915
  2. ZEJULA [Suspect]
     Active Substance: NIRAPARIB
     Indication: ENDOMETRIAL NEOPLASM
     Dosage: 200 MG, QPM
     Route: 048
     Dates: start: 20170630

REACTIONS (6)
  - Platelet count decreased [Not Recovered/Not Resolved]
  - Depression [Not Recovered/Not Resolved]
  - Product use in unapproved indication [Recovered/Resolved]
  - Drug ineffective [Unknown]
  - Headache [Not Recovered/Not Resolved]
  - Insomnia [Not Recovered/Not Resolved]

NARRATIVE: CASE EVENT DATE: 2017
